FAERS Safety Report 13544311 (Version 1)
Quarter: 2017Q2

REPORT INFORMATION
  Report Type: Spontaneous
  Country: US (occurrence: US)
  Receive Date: 20170512
  Receipt Date: 20170512
  Transmission Date: 20170830
  Serious: Yes (Disabling)
  Sender: FDA-Public Use
  Company Number: None

PATIENT
  Age: 31 Year
  Sex: Female
  Weight: 85.5 kg

DRUGS (3)
  1. KENALOG-10 [Suspect]
     Active Substance: TRIAMCINOLONE ACETONIDE
     Indication: ARTHROPATHY
     Dosage: OTHER FREQUENCY:ONETIME INJECTION;?
     Route: 008
     Dates: start: 20170315, end: 20170315
  2. KENALOG-10 [Suspect]
     Active Substance: TRIAMCINOLONE ACETONIDE
     Indication: SACROILIITIS
     Dosage: OTHER FREQUENCY:ONETIME INJECTION;?
     Route: 008
     Dates: start: 20170315, end: 20170315
  3. FIBERCON [Concomitant]
     Active Substance: CALCIUM POLYCARBOPHIL

REACTIONS (7)
  - Flushing [None]
  - Anxiety [None]
  - Night sweats [None]
  - Polymenorrhoea [None]
  - Premenstrual syndrome [None]
  - Urinary tract infection [None]
  - Ovarian cyst [None]

NARRATIVE: CASE EVENT DATE: 20170315
